FAERS Safety Report 8848390 (Version 2)
Quarter: 2012Q4

REPORT INFORMATION
  Report Type: 
  Country: BR (occurrence: BR)
  Receive Date: 20121019
  Receipt Date: 20121101
  Transmission Date: 20130627
  Serious: Yes (Other)
  Sender: FDA-Public Use
  Company Number: BR-AMGEN-BRASP2012024434

PATIENT
  Age: 46 Year
  Sex: Female
  Weight: 60 kg

DRUGS (10)
  1. ENBREL [Suspect]
     Indication: RHEUMATOID ARTHRITIS
     Dosage: 50 mg, 1x/week
     Route: 058
     Dates: start: 201111
  2. ENBREL [Suspect]
     Dosage: 50 mg, 1x/week
     Route: 058
     Dates: start: 201203
  3. ALPRAZOLAM [Concomitant]
     Indication: SLEEP DISORDER
     Dosage: UNK
  4. DORFLEX [Concomitant]
     Indication: ANALGESIC THERAPY
     Dosage: UNK
  5. DIPIRONE [Concomitant]
     Indication: ANALGESIC THERAPY
     Dosage: UNK
  6. PARACETAMOL [Concomitant]
     Indication: ANALGESIC THERAPY
     Dosage: UNK
  7. IBUPROFEN [Concomitant]
     Indication: PAIN
     Dosage: UNK
  8. ENALAPRIL [Concomitant]
     Indication: BLOOD PRESSURE
     Dosage: UNK
  9. ENALAPRIL [Concomitant]
     Indication: HYPERTENSION
  10. CATAFLAM                           /00372302/ [Concomitant]
     Indication: PAIN
     Dosage: UNK

REACTIONS (9)
  - Hand fracture [Unknown]
  - Drug ineffective [Not Recovered/Not Resolved]
  - Osteomyelitis [Unknown]
  - Injection site pain [Not Recovered/Not Resolved]
  - Injection site erythema [Not Recovered/Not Resolved]
  - Injection site pruritus [Not Recovered/Not Resolved]
  - Injection site swelling [Not Recovered/Not Resolved]
  - Injection site vesicles [Not Recovered/Not Resolved]
  - Injection site paraesthesia [Not Recovered/Not Resolved]
